FAERS Safety Report 13386068 (Version 1)
Quarter: 2017Q1

REPORT INFORMATION
  Report Type: Spontaneous
  Country: US (occurrence: US)
  Receive Date: 20170330
  Receipt Date: 20170330
  Transmission Date: 20170429
  Serious: No
  Sender: FDA-Public Use
  Company Number: US-BAUSCH-BL-2017-000395

PATIENT
  Sex: Male
  Weight: 105.78 kg

DRUGS (1)
  1. JUBLIA [Suspect]
     Active Substance: EFINACONAZOLE
     Indication: ONYCHOMYCOSIS
     Dosage: 1 APPLICATION DAILY TO ALL TOENAILS
     Route: 061
     Dates: start: 201510, end: 20170103

REACTIONS (2)
  - Application site erythema [Unknown]
  - Application site swelling [Unknown]
